FAERS Safety Report 10149598 (Version 1)
Quarter: 2014Q2

REPORT INFORMATION
  Report Type: Spontaneous
  Country: US (occurrence: US)
  Receive Date: 20140502
  Receipt Date: 20140502
  Transmission Date: 20141212
  Serious: No
  Sender: FDA-Public Use
  Company Number: US-PFIZER INC-2014121074

PATIENT
  Age: 30 Year
  Sex: Female
  Weight: 63.5 kg

DRUGS (4)
  1. XANAX [Suspect]
     Indication: PANIC DISORDER
     Dosage: 5 MG, DAILY
  2. XANAX [Suspect]
     Indication: OBSESSIVE-COMPULSIVE DISORDER
  3. XANAX [Suspect]
     Indication: DEPRESSION
  4. XANAX [Suspect]
     Indication: PHOBIA

REACTIONS (1)
  - Drug ineffective [Unknown]
